FAERS Safety Report 6193894-3 (Version None)
Quarter: 2009Q2

REPORT INFORMATION
  Report Type: 
  Country: None (occurrence: None)
  Receive Date: 20090518
  Receipt Date: 20090508
  Transmission Date: 20091009
  Serious: Yes (Hospitalization)
  Sender: FDA-Public Use
  Company Number: DE-GILEAD-2008-0019205

PATIENT
  Sex: Female
  Weight: 80 kg

DRUGS (1)
  1. AMBRISENTAN [Suspect]
     Indication: PULMONARY ARTERIAL HYPERTENSION
     Route: 048
     Dates: start: 20081001

REACTIONS (2)
  - ATRIAL FLUTTER [None]
  - OEDEMA [None]
